FAERS Safety Report 23328419 (Version 3)
Quarter: 2024Q3

REPORT INFORMATION
  Report Type: Spontaneous
  Country: US (occurrence: US)
  Receive Date: 20231221
  Receipt Date: 20240826
  Transmission Date: 20241017
  Serious: No
  Sender: ELI LILLY AND CO
  Company Number: US-ELI_LILLY_AND_COMPANY-US202312009479

PATIENT
  Age: 62 Year
  Sex: Female

DRUGS (5)
  1. VERZENIO [Suspect]
     Active Substance: ABEMACICLIB
     Indication: Breast cancer female
     Dosage: 150 MG, BID
     Route: 065
     Dates: start: 20230424
  2. VERZENIO [Suspect]
     Active Substance: ABEMACICLIB
     Dosage: 100 MG, BID
     Route: 065
     Dates: start: 202306
  3. VERZENIO [Suspect]
     Active Substance: ABEMACICLIB
     Dosage: 100 MG, BID
     Route: 065
  4. GEMTESA [Suspect]
     Active Substance: VIBEGRON
     Indication: Product used for unknown indication
     Dosage: 10 MG, UNKNOWN
     Route: 065
  5. AROMASIN [Concomitant]
     Active Substance: EXEMESTANE
     Indication: Breast cancer
     Dosage: UNK UNK, DAILY
     Route: 065
     Dates: start: 20230424

REACTIONS (29)
  - Skin exfoliation [Unknown]
  - Palpitations [Recovered/Resolved]
  - Mean cell volume increased [Unknown]
  - Haemoglobin increased [Unknown]
  - Dry skin [Unknown]
  - Pallor [Unknown]
  - Hypothyroidism [Not Recovered/Not Resolved]
  - Amnesia [Not Recovered/Not Resolved]
  - Heart rate irregular [Unknown]
  - Hair growth abnormal [Unknown]
  - Onychomalacia [Unknown]
  - Initial insomnia [Unknown]
  - Somnolence [Unknown]
  - Peristalsis visible [Unknown]
  - Liver function test increased [Not Recovered/Not Resolved]
  - Thermal burn [Unknown]
  - Fall [Unknown]
  - Injury [Unknown]
  - Mobility decreased [Not Recovered/Not Resolved]
  - Constipation [Unknown]
  - Red blood cell count decreased [Unknown]
  - White blood cell count decreased [Unknown]
  - Pneumonitis [Unknown]
  - Dysgeusia [Unknown]
  - Dizziness [Unknown]
  - Neutropenia [Unknown]
  - Dyspepsia [Unknown]
  - Asthenia [Unknown]
  - Fatigue [Unknown]

NARRATIVE: CASE EVENT DATE: 20230801
